FAERS Safety Report 24461235 (Version 1)
Quarter: 2024Q4

REPORT INFORMATION
  Report Type: Report from Study
  Country: US (occurrence: US)
  Receive Date: 20241018
  Receipt Date: 20241018
  Transmission Date: 20250115
  Serious: No
  Sender: ROCHE
  Company Number: US-ROCHE-3563599

PATIENT
  Age: 48 Year
  Sex: Female

DRUGS (3)
  1. RITUXAN [Suspect]
     Active Substance: RITUXIMAB
     Indication: Dermatomyositis
     Route: 041
     Dates: start: 20210614, end: 20220614
  2. RITUXAN [Suspect]
     Active Substance: RITUXIMAB
     Indication: Orbital oedema
     Route: 041
     Dates: start: 20210614, end: 20220614
  3. RITUXAN [Suspect]
     Active Substance: RITUXIMAB
     Indication: Lung disorder

REACTIONS (3)
  - Off label use [Unknown]
  - No adverse event [Unknown]
  - Off label use [Unknown]
